FAERS Safety Report 20903944 (Version 1)
Quarter: 2022Q2

REPORT INFORMATION
  Report Type: Spontaneous
  Country: US (occurrence: US)
  Receive Date: 20220602
  Receipt Date: 20220602
  Transmission Date: 20220721
  Serious: No
  Sender: FDA-Public Use
  Company Number: US-009507513-2205USA007716

PATIENT
  Age: 65 Year
  Sex: Female

DRUGS (1)
  1. MOLNUPIRAVIR [Suspect]
     Active Substance: MOLNUPIRAVIR
     Indication: COVID-19 treatment
     Dosage: 4 CAPSULES EVERY 12 HOURS (ALSO REPORTED THAT SHE HAD TAKEN 3 AND 1/2 CAPSULES ON 25-MAY-2022)
     Route: 048
     Dates: start: 20220525

REACTIONS (6)
  - Wrong technique in product usage process [Unknown]
  - Product use complaint [Unknown]
  - Incorrect dose administered [Unknown]
  - Product physical issue [Unknown]
  - Poor quality product administered [Unknown]
  - No adverse event [Unknown]

NARRATIVE: CASE EVENT DATE: 20220525
